FAERS Safety Report 5263815-6 (Version None)
Quarter: 2007Q1

REPORT INFORMATION
  Report Type: 
  Country: None (occurrence: None)
  Receive Date: 20070313
  Receipt Date: 20070309
  Transmission Date: 20070707
  Serious: Yes (Other)
  Sender: FDA-Public Use
  Company Number: US-GLAXOSMITHKLINE-A0642637A

PATIENT
  Age: 59 Year
  Sex: Female

DRUGS (10)
  1. ADVAIR DISKUS 100/50 [Suspect]
     Indication: ASTHMA
     Dosage: 1PUFF THREE TIMES PER DAY
     Route: 055
  2. ATROVENT [Concomitant]
  3. IMIPRAMINE [Concomitant]
  4. AMBIEN [Concomitant]
  5. ZOLOFT [Concomitant]
  6. TRAZODONE HCL [Concomitant]
  7. CODEINE [Concomitant]
  8. SOMA [Concomitant]
  9. SYNTHROID [Concomitant]
  10. FEMALE HORMONES [Concomitant]

REACTIONS (9)
  - APHONIA [None]
  - ASTHMA [None]
  - GLAUCOMA [None]
  - HEART RATE IRREGULAR [None]
  - INAPPROPRIATE SCHEDULE OF DRUG ADMINISTRATION [None]
  - NERVOUSNESS [None]
  - SINUSITIS [None]
  - THROAT IRRITATION [None]
  - TREMOR [None]
